FAERS Safety Report 9161498 (Version 2)
Quarter: 2013Q2

REPORT INFORMATION
  Report Type: Spontaneous
  Country: GR (occurrence: GR)
  Receive Date: 20130313
  Receipt Date: 20130618
  Transmission Date: 20140414
  Serious: Yes (Hospitalization, Disabling)
  Sender: FDA-Public Use
  Company Number: GR-B.I. PHARMACEUTICALS,INC./RIDGEFIELD-2013-BI-06419GB

PATIENT
  Age: 80 Year
  Sex: Female

DRUGS (3)
  1. PRADAXA [Suspect]
     Indication: ATRIAL FIBRILLATION
     Dosage: 220 MG
     Route: 048
     Dates: start: 201202, end: 201301
  2. SALOSPIR [Concomitant]
     Indication: ATRIAL FIBRILLATION
     Route: 048
  3. UNSPECIFIED DRUGS FOR HYPERTENSION [Concomitant]
     Indication: HYPERTENSION
     Route: 048
     Dates: end: 201301

REACTIONS (4)
  - Haemorrhagic stroke [Recovered/Resolved]
  - Vision blurred [Not Recovered/Not Resolved]
  - Speech disorder [Not Recovered/Not Resolved]
  - Hemiplegia [Not Recovered/Not Resolved]
